FAERS Safety Report 4578515-5 (Version None)
Quarter: 2005Q1

REPORT INFORMATION
  Report Type: 
  Country: None (occurrence: None)
  Receive Date: 20050209
  Receipt Date: 20050204
  Transmission Date: 20050727
  Serious: Yes (Life-Threatening)
  Sender: FDA-Public Use
  Company Number: J081-002-001866

PATIENT
  Age: 88 Year
  Sex: Male
  Weight: 50 kg

DRUGS (3)
  1. ARICEPT [Suspect]
     Indication: DEMENTIA ALZHEIMER'S TYPE
     Dosage: 5 MG, 1 IN 1 D, ORAL
     Route: 048
     Dates: end: 20050201
  2. MAGNESIUM OXIDE (MAGNESIUM OXIDE) [Concomitant]
  3. PURSENNID (SENNA LEAF) [Concomitant]

REACTIONS (4)
  - ATRIAL FIBRILLATION [None]
  - BRADYCARDIA [None]
  - CARDIAC ARREST [None]
  - HYPOTENSION [None]
